FAERS Safety Report 6801088-0 (Version None)
Quarter: 2010Q2

REPORT INFORMATION
  Report Type: 
  Country: None (occurrence: None)
  Receive Date: 20100629
  Receipt Date: 20100618
  Transmission Date: 20101027
  Serious: Yes (Other)
  Sender: FDA-Public Use
  Company Number: US-JNJFOC-20100601020

PATIENT
  Sex: Male
  Weight: 74.39 kg

DRUGS (7)
  1. REMICADE [Suspect]
     Indication: CROHN'S DISEASE
     Route: 042
  2. REMICADE [Suspect]
     Dosage: STARTED IN JUNE OR JULY 2009
     Route: 042
  3. LOTREL [Concomitant]
     Indication: BLOOD PRESSURE
  4. LOTREL [Concomitant]
  5. TERAZOSIN HCL [Concomitant]
     Indication: BLOOD PRESSURE
  6. TERAZOSIN HCL [Concomitant]
  7. PREDNISONE [Concomitant]
     Indication: CROHN'S DISEASE

REACTIONS (4)
  - BLOOD PRESSURE INCREASED [None]
  - CATARACT [None]
  - OBSTRUCTION [None]
  - THERAPEUTIC RESPONSE UNEXPECTED [None]
